FAERS Safety Report 24405106 (Version 1)
Quarter: 2024Q4

REPORT INFORMATION
  Report Type: Spontaneous
  Country: US (occurrence: None)
  Receive Date: 20241004
  Receipt Date: 20241004
  Transmission Date: 20250115
  Serious: Yes (Other)
  Sender: Public
  Company Number: None

PATIENT
  Age: 41 Year
  Sex: Male
  Weight: 110.7 kg

DRUGS (1)
  1. KRYSTEXXA [Suspect]
     Active Substance: PEGLOTICASE
     Indication: Gout
     Dates: start: 20240717, end: 20240828

REACTIONS (4)
  - Urticaria [None]
  - Dysphagia [None]
  - Dysphonia [None]
  - Tachycardia [None]

NARRATIVE: CASE EVENT DATE: 20240828
